FAERS Safety Report 16623175 (Version 1)
Quarter: 2019Q3

REPORT INFORMATION
  Report Type: Spontaneous
  Country: US (occurrence: US)
  Receive Date: 20190723
  Receipt Date: 20190723
  Transmission Date: 20191004
  Serious: No
  Sender: FDA-Public Use
  Company Number: US-IMPAX LABORATORIES, LLC-2018-IPXL-03661

PATIENT
  Sex: Male

DRUGS (4)
  1. NORTHERA [Suspect]
     Active Substance: DROXIDOPA
     Indication: DIZZINESS
  2. NORTHERA [Suspect]
     Active Substance: DROXIDOPA
     Indication: ORTHOSTATIC HYPOTENSION
     Dosage: 300 MILLIGRAM, THREE TIMES A DAY
     Route: 048
     Dates: start: 201810
  3. MIDODRINE HYDROCHLORIDE. [Suspect]
     Active Substance: MIDODRINE HYDROCHLORIDE
     Indication: ORTHOSTATIC HYPOTENSION
     Dosage: UNK, TAPERING DOWN
     Route: 065
  4. MIDODRINE HYDROCHLORIDE. [Suspect]
     Active Substance: MIDODRINE HYDROCHLORIDE
     Indication: DIZZINESS
     Dosage: UNK
     Route: 065
     Dates: start: 2017

REACTIONS (4)
  - Drug ineffective [Recovering/Resolving]
  - Oedema peripheral [Recovering/Resolving]
  - Orthostatic hypotension [Unknown]
  - Dizziness [Unknown]
